FAERS Safety Report 7598414-4 (Version None)
Quarter: 2011Q3

REPORT INFORMATION
  Report Type: 
  Country: None (occurrence: None)
  Receive Date: 20110708
  Receipt Date: 20110628
  Transmission Date: 20111222
  Serious: Yes (Hospitalization, Other)
  Sender: FDA-Public Use
  Company Number: CA-ABBOTT-10P-028-0682716-04

PATIENT
  Sex: Male
  Weight: 76.8 kg

DRUGS (27)
  1. FOLIC ACID [Concomitant]
     Indication: RHEUMATOID ARTHRITIS
     Route: 048
     Dates: start: 19950101
  2. METFORMIN HCL [Concomitant]
     Indication: DIABETES MELLITUS
     Route: 048
     Dates: start: 20000616, end: 20060313
  3. DOCUSATE CALCIUM [Concomitant]
     Indication: CONSTIPATION PROPHYLAXIS
     Route: 048
     Dates: start: 20090716
  4. HUMIRA [Suspect]
     Indication: RHEUMATOID ARTHRITIS
     Route: 058
     Dates: start: 20001116, end: 20101021
  5. LIPITOR [Concomitant]
     Indication: HYPERLIPIDAEMIA
     Route: 048
     Dates: start: 20041201
  6. TEMAZEPAM [Concomitant]
     Indication: INSOMNIA
     Route: 048
     Dates: start: 20090316
  7. ASPIRIN [Concomitant]
     Indication: CARDIOVASCULAR EVENT PROPHYLAXIS
     Route: 048
     Dates: start: 19950101
  8. METFORMIN HCL [Concomitant]
     Route: 048
     Dates: start: 20000616, end: 20060313
  9. METFORMIN HCL [Concomitant]
     Route: 048
     Dates: start: 20060314, end: 20071003
  10. MULTI-VITAMIN [Concomitant]
     Indication: VITAMIN SUPPLEMENTATION
     Route: 048
     Dates: start: 20080701
  11. DOCUSATE CALCIUM [Concomitant]
     Indication: CONSTIPATION
     Route: 048
     Dates: start: 20090626, end: 20090715
  12. METFORMIN HCL [Concomitant]
     Route: 048
     Dates: start: 20071004, end: 20071201
  13. METFORMIN HCL [Concomitant]
     Route: 048
     Dates: start: 20071202
  14. SENOKOT [Concomitant]
     Indication: CONSTIPATION
     Route: 048
     Dates: start: 20090626, end: 20090715
  15. FLOVENT [Concomitant]
     Indication: PRODUCT USED FOR UNKNOWN INDICATION
     Route: 048
  16. ALPROSTADIL [Concomitant]
     Indication: ERECTILE DYSFUNCTION
     Route: 050
     Dates: start: 19850101
  17. FUROSEMIDE [Concomitant]
     Route: 048
     Dates: start: 20060314
  18. ALTACE [Concomitant]
     Indication: CARDIAC FAILURE CONGESTIVE
     Route: 048
     Dates: start: 20040901
  19. CARVEDILOL [Concomitant]
     Indication: CARDIAC FAILURE CONGESTIVE
     Route: 048
     Dates: start: 20040401
  20. VITAMIN D [Concomitant]
     Indication: VITAMIN SUPPLEMENTATION
     Route: 048
     Dates: start: 19950101
  21. METHOTREXATE [Concomitant]
     Indication: RHEUMATOID ARTHRITIS
     Route: 058
     Dates: start: 20041216
  22. VITAMIN E [Concomitant]
     Indication: VITAMIN SUPPLEMENTATION
     Route: 048
     Dates: start: 20021115
  23. FUROSEMIDE [Concomitant]
     Route: 048
     Dates: start: 20040402, end: 20060201
  24. FUROSEMIDE [Concomitant]
     Indication: CARDIAC FAILURE CONGESTIVE
     Route: 048
     Dates: start: 20060202, end: 20060313
  25. SENOKOT [Concomitant]
     Indication: CONSTIPATION PROPHYLAXIS
     Dates: start: 20090716
  26. NASONEX [Concomitant]
     Indication: SINUSITIS
     Route: 055
     Dates: start: 20100224
  27. OXYCODONE HCL AND ACETAMINOPHEN [Concomitant]
     Indication: PRODUCT USED FOR UNKNOWN INDICATION
     Route: 048

REACTIONS (1)
  - BLADDER CANCER [None]
